FAERS Safety Report 22351715 (Version 1)
Quarter: 2023Q2

REPORT INFORMATION
  Report Type: Spontaneous
  Country: US (occurrence: US)
  Receive Date: 20230522
  Receipt Date: 20230522
  Transmission Date: 20230721
  Serious: Yes (Other)
  Sender: FDA-Public Use
  Company Number: US-PFIZER INC-PV202300088869

PATIENT

DRUGS (1)
  1. DEXMEDETOMIDINE HYDROCHLORIDE [Suspect]
     Active Substance: DEXMEDETOMIDINE HYDROCHLORIDE
     Indication: Agitation
     Dosage: UNK, (140 MCG/HOUR (35 ML/HOUR))
     Route: 042

REACTIONS (4)
  - Device delivery system issue [Unknown]
  - Agonal respiration [Unknown]
  - Unresponsive to stimuli [Unknown]
  - Off label use [Unknown]
